FAERS Safety Report 9575619 (Version 1)
Quarter: 2013Q4

REPORT INFORMATION
  Report Type: Spontaneous
  Country: US (occurrence: US)
  Receive Date: 20131001
  Receipt Date: 20131001
  Transmission Date: 20140711
  Serious: No
  Sender: FDA-Public Use
  Company Number: US-AMGEN-USASP2012083951

PATIENT
  Age: 58 Year
  Sex: Female
  Weight: 108 kg

DRUGS (10)
  1. ENBREL [Suspect]
     Indication: PRODUCT USED FOR UNKNOWN INDICATION
     Dosage: 50 MG, 2 TIMES/WK
     Route: 058
  2. PERCOCET                           /00867901/ [Concomitant]
     Dosage: 10-325 MG
  3. VALIUM                             /00017001/ [Concomitant]
     Dosage: 10 MG, UNK
  4. COZAAR [Concomitant]
     Dosage: 100 MG, UNK
  5. PROAIR HFA [Concomitant]
     Dosage: UNK
  6. SIMVASTATIN [Concomitant]
     Dosage: 10 MG, UNK
  7. SYMBICORT [Concomitant]
     Dosage: 160-4.5
  8. METOLAZONE [Concomitant]
     Dosage: 10 MG, UNK
  9. AMLODIPINE [Concomitant]
     Dosage: 10 MG, UNK
  10. RESTASIS [Concomitant]
     Dosage: 0.05 %, UNK

REACTIONS (1)
  - Pneumonia [Unknown]
